FAERS Safety Report 17945216 (Version 2)
Quarter: 2020Q3

REPORT INFORMATION
  Report Type: Spontaneous
  Country: FR (occurrence: FR)
  Receive Date: 20200626
  Receipt Date: 20200709
  Transmission Date: 20201103
  Serious: Yes (Hospitalization, Other)
  Sender: FDA-Public Use
  Company Number: FR-AUROBINDO-AUR-APL-2020-030536

PATIENT
  Age: 79 Year
  Sex: Male
  Weight: 63 kg

DRUGS (7)
  1. AMOXICILLIN ARROW  DISPERSIBLE TABLET 1G [Suspect]
     Active Substance: AMOXICILLIN
     Indication: SEPTIC ARTHRITIS STREPTOCOCCAL
     Dosage: 3G/8H PUIS 2G/8H PUIS 1G/8H PUIS 0.5G/8H
     Route: 048
     Dates: start: 20200410, end: 20200415
  2. IRBESARTAN. [Concomitant]
     Active Substance: IRBESARTAN
     Indication: PRODUCT USED FOR UNKNOWN INDICATION
     Dosage: 150 MILLIGRAM, ONCE A DAY
     Route: 048
  3. CEFOTAXIME [Concomitant]
     Active Substance: CEFOTAXIME SODIUM
     Indication: PRODUCT USED FOR UNKNOWN INDICATION
     Dosage: 1 GRAM, 3 TIMES A DAY
     Route: 040
     Dates: start: 20200407
  4. PANTOPRAZOLE [Concomitant]
     Active Substance: PANTOPRAZOLE
     Indication: PRODUCT USED FOR UNKNOWN INDICATION
     Dosage: 20 MILLIGRAM, ONCE A DAY
     Route: 048
  5. AMOXICILLIN. [Suspect]
     Active Substance: AMOXICILLIN
     Indication: SEPTIC ARTHRITIS STREPTOCOCCAL
     Dosage: 3G/8H PUIS 2G/8H PUIS 0.5G/8H
     Route: 048
     Dates: start: 20200408, end: 20200515
  6. AMOXICILLINE PANPHARMA [Suspect]
     Active Substance: AMOXICILLIN
     Indication: SEPTIC ARTHRITIS STREPTOCOCCAL
     Dosage: 3G/8H
     Route: 042
     Dates: start: 20200408, end: 20200410
  7. PERFALGAN [Concomitant]
     Active Substance: ACETAMINOPHEN
     Indication: PRODUCT USED FOR UNKNOWN INDICATION
     Dosage: 1 GRAM, 3 TIMES A DAY
     Route: 042
     Dates: start: 20200407

REACTIONS (1)
  - Acute kidney injury [Recovering/Resolving]

NARRATIVE: CASE EVENT DATE: 20200414
